FAERS Safety Report 5924005-4 (Version None)
Quarter: 2008Q4

REPORT INFORMATION
  Report Type: 
  Country: None (occurrence: None)
  Receive Date: 20081020
  Receipt Date: 20081009
  Transmission Date: 20090506
  Serious: Yes (Other)
  Sender: FDA-Public Use
  Company Number: PHHY2008NZ24212

PATIENT
  Sex: Female

DRUGS (9)
  1. CLOZARIL [Suspect]
     Dosage: 50-75 MG DAILY
     Dates: start: 20080916
  2. CLOZARIL [Suspect]
     Dosage: 250 MG DAILY
  3. BENZTROPINE MESYLATE [Concomitant]
     Dosage: 4 MG DAILY
  4. CLONAZEPAM [Concomitant]
     Dosage: 1 MG DAILY
  5. BENDROFLUAZIDE [Concomitant]
     Dosage: 2.5 MG MANE
  6. DOXAZOSIN MESYLATE [Concomitant]
     Dosage: 4 MG AT NIGHT
  7. VALPROATE SODIUM [Concomitant]
     Dosage: 1800 MG AT NIGHT
  8. COLOXYL WITH SENNA [Concomitant]
  9. LACTULOSE [Concomitant]

REACTIONS (6)
  - C-REACTIVE PROTEIN INCREASED [None]
  - CONSTIPATION [None]
  - FATIGUE [None]
  - PYREXIA [None]
  - SEDATION [None]
  - TREMOR [None]
